FAERS Safety Report 6038494-0 (Version None)
Quarter: 2009Q1

REPORT INFORMATION
  Report Type: 
  Country: None (occurrence: None)
  Receive Date: 20090115
  Receipt Date: 20080428
  Transmission Date: 20090719
  Serious: No
  Sender: FDA-Public Use
  Company Number: US-KINGPHARMUSA00001-K200800514

PATIENT
  Age: 50 Year
  Sex: Female

DRUGS (16)
  1. EPIPEN [Suspect]
     Dosage: UNK, SINGLE
     Dates: start: 20080428, end: 20080428
  2. ALLEGRA /01314201/ [Concomitant]
     Dosage: 180 MG, UNK
  3. EFFEXOR [Concomitant]
     Dosage: 150 MG, UNK
  4. LEVOTHYROXINE SODIUM [Concomitant]
     Dosage: 50 MCG, UNK
  5. MIRAPEX [Concomitant]
     Dosage: .25 MG, UNK
  6. NASONEX [Concomitant]
     Dosage: 50 MCG, QD
     Route: 051
  7. SPIRONOLACTONE [Concomitant]
  8. ASPIRIN [Concomitant]
     Dosage: 325 MG, UNK
  9. CALTRATE +D [Concomitant]
  10. MULTIVITAMIN    /00831701/ [Concomitant]
  11. NIACIN [Concomitant]
  12. GLYCOLAX [Concomitant]
  13. GLUCERNA SUPPOSITORY [Concomitant]
  14. BENEFIBER [Concomitant]
  15. KLONOPIN [Concomitant]
     Dosage: 1 MG, UNK
  16. GEMFIBROZIL [Concomitant]
     Dosage: 600 MG, UNK

REACTIONS (6)
  - ACCIDENTAL EXPOSURE [None]
  - EXPIRED DRUG ADMINISTERED [None]
  - HYPOAESTHESIA [None]
  - INJECTION SITE COLDNESS [None]
  - INJECTION SITE JOINT SWELLING [None]
  - PARAESTHESIA [None]
